FAERS Safety Report 25012921 (Version 1)
Quarter: 2025Q1

REPORT INFORMATION
  Report Type: Report from Study
  Country: CA (occurrence: CA)
  Receive Date: 20250226
  Receipt Date: 20250226
  Transmission Date: 20250409
  Serious: Yes (Death, Hospitalization, Other)
  Sender: ALEXION PHARMACEUTICALS
  Company Number: CA-AstraZeneca-CH-00787018A

PATIENT

DRUGS (22)
  1. SOLIRIS [Suspect]
     Active Substance: ECULIZUMAB
     Indication: Myasthenia gravis
     Dosage: 900 MILLIGRAM, QW
  2. SOLIRIS [Suspect]
     Active Substance: ECULIZUMAB
     Dosage: 1200 MILLIGRAM, Q2W
  3. FUROSEMIDE [Concomitant]
     Active Substance: FUROSEMIDE
     Route: 065
  4. AMIODARONE [Concomitant]
     Active Substance: AMIODARONE
     Route: 065
  5. AMITRIPTYLINE [Concomitant]
     Active Substance: AMITRIPTYLINE
     Route: 065
  6. BISOPROLOL [Concomitant]
     Active Substance: BISOPROLOL
  7. CALCIUM CITRATE [Concomitant]
     Active Substance: CALCIUM CITRATE
  8. CYANOCOBALAMIN [Concomitant]
     Active Substance: CYANOCOBALAMIN
  9. EDOXABAN [Concomitant]
     Active Substance: EDOXABAN
  10. EMPAGLIFLOZIN [Concomitant]
     Active Substance: EMPAGLIFLOZIN
  11. FERROUS GLUCONATE [Concomitant]
     Active Substance: FERROUS GLUCONATE
  12. HYDROMORPHONE [Concomitant]
     Active Substance: HYDROMORPHONE
     Dosage: 2 MILLIGRAM, TID
  13. LEVOTHYROXINE [Concomitant]
     Active Substance: LEVOTHYROXINE
  14. MIRABEGRON [Concomitant]
     Active Substance: MIRABEGRON
  15. VITAMINS [Concomitant]
     Active Substance: VITAMINS
  16. MYCOPHENOLIC ACID [Concomitant]
     Active Substance: MYCOPHENOLIC ACID
  17. POTASSIUM CHLORIDE [Concomitant]
     Active Substance: POTASSIUM CHLORIDE
  18. PREDNISONE [Concomitant]
     Active Substance: PREDNISONE
  19. SENNOSIDES [Concomitant]
     Active Substance: SENNOSIDES
  20. METFORMIN\SITAGLIPTIN [Concomitant]
     Active Substance: METFORMIN\SITAGLIPTIN
  21. TYLENOL [Concomitant]
     Active Substance: ACETAMINOPHEN
     Route: 065
  22. IRON [Concomitant]
     Active Substance: IRON
     Dosage: 1 DOSAGE FORM, QD
     Route: 065

REACTIONS (1)
  - Death [Fatal]
